FAERS Safety Report 21781289 (Version 1)
Quarter: 2022Q4

REPORT INFORMATION
  Report Type: Spontaneous
  Country: US (occurrence: US)
  Receive Date: 20221227
  Receipt Date: 20221227
  Transmission Date: 20230112
  Serious: Yes (Other)
  Sender: FDA-Public Use
  Company Number: US-ASTELLAS-2022US041430

PATIENT
  Age: 83 Year
  Sex: Male

DRUGS (3)
  1. PADCEV [Suspect]
     Active Substance: ENFORTUMAB VEDOTIN-EJFV
     Indication: Transitional cell carcinoma
     Route: 065
     Dates: start: 20220901
  2. PADCEV [Suspect]
     Active Substance: ENFORTUMAB VEDOTIN-EJFV
     Dosage: UNK UNK, CYCLIC
     Route: 065
  3. PEMBROLIZUMAB [Suspect]
     Active Substance: PEMBROLIZUMAB
     Indication: Transitional cell carcinoma
     Dosage: 200 MG, CYCLIC, D1
     Route: 065
     Dates: start: 20220901

REACTIONS (10)
  - Stomatitis [Unknown]
  - Neuropathy peripheral [Unknown]
  - Anxiety [Unknown]
  - Taste disorder [Unknown]
  - Hypophagia [Unknown]
  - Weight decreased [Unknown]
  - Peroneal nerve palsy [Unknown]
  - Condition aggravated [Unknown]
  - Dry mouth [Unknown]
  - Dehydration [Unknown]
